FAERS Safety Report 7740616 (Version 3)
Quarter: 2012Q4

REPORT INFORMATION
  Report Type: 
  Country: US (occurrence: US)
  Receive Date: 20101227
  Receipt Date: 20121226
  Transmission Date: 20130627
  Serious: Yes (Hospitalization, Other)
  Sender: FDA-Public Use
  Company Number: US-ABBOTT-10P-163-0686271-00

PATIENT
  Age: 69 Year
  Sex: Male
  Weight: 75.36 kg

DRUGS (8)
  1. LUPRON DEPOT 22.5 MG [Suspect]
     Indication: PROSTATE CANCER
  2. CRESTOR [Concomitant]
     Indication: PRODUCT USED FOR UNKNOWN INDICATION
  3. FISH OIL [Concomitant]
     Indication: PRODUCT USED FOR UNKNOWN INDICATION
  4. MULTIVITAMIN [Concomitant]
     Indication: VITAMIN SUPPLEMENTATION
  5. VITAMIN D [Concomitant]
     Indication: VITAMIN SUPPLEMENTATION
  6. ASPIRIN [Concomitant]
     Indication: PRODUCT USED FOR UNKNOWN INDICATION
  7. ZOMETA [Concomitant]
     Indication: PRODUCT USED FOR UNKNOWN INDICATION
  8. PROCRIT [Concomitant]
     Indication: PRODUCT USED FOR UNKNOWN INDICATION

REACTIONS (12)
  - Hypotension [Unknown]
  - Anaemia [Unknown]
  - Prostate cancer metastatic [Unknown]
  - Thrombocytopenia [Unknown]
  - Asthenia [Unknown]
  - Productive cough [Unknown]
  - Haemoptysis [Unknown]
  - Presyncope [Unknown]
  - Hyperhidrosis [Unknown]
  - Cold sweat [Unknown]
  - Pallor [Unknown]
  - Blood cortisol increased [Unknown]
